FAERS Safety Report 25832576 (Version 1)
Quarter: 2025Q3

REPORT INFORMATION
  Report Type: Spontaneous
  Country: EU (occurrence: EU)
  Receive Date: 20250922
  Receipt Date: 20250922
  Transmission Date: 20251020
  Serious: Yes (Hospitalization)
  Sender: OTSUKA
  Company Number: None

PATIENT
  Age: 43 Year
  Sex: Female
  Weight: 115 kg

DRUGS (1)
  1. ABILIFY [Suspect]
     Active Substance: ARIPIPRAZOLE
     Indication: Schizophrenia
     Dosage: 10 MG, QD
     Route: 048
     Dates: start: 2005

REACTIONS (1)
  - Tricuspid valve disease [Recovering/Resolving]

NARRATIVE: CASE EVENT DATE: 20250119
